FAERS Safety Report 5237318-9 (Version None)
Quarter: 2007Q1

REPORT INFORMATION
  Report Type: 
  Country: None (occurrence: None)
  Receive Date: 20070213
  Receipt Date: 20070201
  Transmission Date: 20070707
  Serious: Yes (Death, Hospitalization)
  Sender: FDA-Public Use
  Company Number: HQWYE276102FEB07

PATIENT
  Age: 73 Year
  Sex: Male

DRUGS (2)
  1. CORDARONE [Suspect]
     Dosage: UNKNOWN; DOSAGE FORM - 200 MG TABLET
     Route: 048
     Dates: start: 20010615, end: 20061109
  2. FLECAINIDE ACETATE [Suspect]
     Dosage: UNKNOWN
     Route: 065
     Dates: start: 20061109

REACTIONS (4)
  - HEPATIC CIRRHOSIS [None]
  - HEPATORENAL SYNDROME [None]
  - RECTAL HAEMORRHAGE [None]
  - SEPTIC SHOCK [None]
